FAERS Safety Report 13599903 (Version 1)
Quarter: 2017Q2

REPORT INFORMATION
  Report Type: Report from Study
  Country: CN (occurrence: CN)
  Receive Date: 20170601
  Receipt Date: 20170601
  Transmission Date: 20170830
  Serious: Yes (Other)
  Sender: FDA-Public Use
  Company Number: CN-ROCHE-1942357

PATIENT

DRUGS (2)
  1. ALTEPLASE [Suspect]
     Active Substance: ALTEPLASE
     Indication: ISCHAEMIC STROKE
     Dosage: 10 PERCENT OF 0.6 MG/KG WAS GIVEN VIA INTRAVENOUS INJECTION WITHIN 1 MINUTE
     Route: 040
  2. ALTEPLASE [Suspect]
     Active Substance: ALTEPLASE
     Dosage: 90 PERCENT OF 0.6 MG/KG WAS GIVEN VIA INTRAVENOUS DRIP WITH INFUSION PUMP WITHIN 60 MINUTES
     Route: 041

REACTIONS (1)
  - Gastrointestinal haemorrhage [Unknown]
